FAERS Safety Report 6518722-5 (Version None)
Quarter: 2009Q4

REPORT INFORMATION
  Report Type: 
  Country: None (occurrence: None)
  Receive Date: 20091228
  Receipt Date: 20091222
  Transmission Date: 20100525
  Serious: Yes (Death, Hospitalization)
  Sender: FDA-Public Use
  Company Number: PHEH2009US13592

PATIENT
  Sex: Female
  Weight: 48.2 kg

DRUGS (5)
  1. EXJADE [Suspect]
     Indication: IRON OVERLOAD
     Dosage: 1500 MG, QD
     Route: 048
     Dates: start: 20090624
  2. PROTONIX [Concomitant]
     Dosage: 40 MG/DAY
     Route: 048
  3. TYLENOL (CAPLET) [Concomitant]
     Dosage: 650 MG, UNK
  4. VALSTAR [Concomitant]
     Dosage: 25 MG PRN
  5. THYMOXAMINE [Concomitant]
     Dosage: 125 UG, UNK
     Route: 048

REACTIONS (7)
  - ACUTE PULMONARY OEDEMA [None]
  - DYSPNOEA [None]
  - FATIGUE [None]
  - INTERSTITIAL LUNG DISEASE [None]
  - LEUKOCYTOSIS [None]
  - LUNG INFECTION [None]
  - SEPSIS [None]
